FAERS Safety Report 7964535 (Version 4)
Quarter: 2012Q4

REPORT INFORMATION
  Report Type: 
  Country: BR (occurrence: BR)
  Receive Date: 20110527
  Receipt Date: 20121213
  Transmission Date: 20130627
  Serious: No
  Sender: FDA-Public Use
  Company Number: BR-ROCHE-778535

PATIENT
  Sex: Female
  Weight: 63.8 kg

DRUGS (1)
  1. ROACCUTAN [Suspect]
     Indication: ACNE
     Route: 048
     Dates: start: 20081202, end: 200907

REACTIONS (2)
  - Pregnancy [Unknown]
  - Acne [Unknown]
